FAERS Safety Report 5322930-9 (Version None)
Quarter: 2007Q1

REPORT INFORMATION
  Report Type: 
  Country: None (occurrence: None)
  Receive Date: 20070220
  Receipt Date: 20061127
  Transmission Date: 20070707
  Serious: No
  Sender: FDA-Public Use
  Company Number: TPA2006A02117

PATIENT
  Age: 60 Year
  Sex: Female
  Weight: 83.4619 kg

DRUGS (12)
  1. ROZEREM [Suspect]
     Dosage: PER ORAL
     Route: 048
  2. LUNESTA [Concomitant]
  3. VALSARTAN [Concomitant]
  4. FOLIC ACID [Concomitant]
  5. OMEPRAZOLE [Concomitant]
  6. SIMVASTATIN [Concomitant]
  7. ASPIRIN [Concomitant]
  8. METFORMIN HCL [Concomitant]
  9. NICOTINIC ACID [Concomitant]
  10. CALTRATE +D (COLECALCIFEROL, CALCIUM CARBONATE) [Concomitant]
  11. FISH OIL (FISH OIL) [Concomitant]
  12. PIOGLITAZONE HCL [Concomitant]

REACTIONS (1)
  - NAUSEA [None]
